FAERS Safety Report 23033804 (Version 5)
Quarter: 2023Q4

REPORT INFORMATION
  Report Type: Report from Study
  Country: BR (occurrence: BR)
  Receive Date: 20231005
  Receipt Date: 20231117
  Transmission Date: 20240110
  Serious: Yes (Hospitalization)
  Sender: FDA-Public Use
  Company Number: BR-TEVA-2023-BR-2931385

PATIENT
  Age: 64 Year
  Sex: Female
  Weight: 61.5 kg

DRUGS (8)
  1. LENALIDOMIDE [Suspect]
     Active Substance: LENALIDOMIDE
     Indication: Follicular lymphoma
     Dosage: 20 MILLIGRAM DAILY;
     Route: 048
     Dates: start: 20230830
  2. EPCORITAMAB [Suspect]
     Active Substance: EPCORITAMAB
     Indication: Follicular lymphoma
     Dosage: 0.16 MG PRIMING DOSE; C1, D1, TOTAL;
     Route: 058
     Dates: start: 20230830, end: 20230830
  3. EPCORITAMAB [Suspect]
     Active Substance: EPCORITAMAB
     Dosage: 0.8 MG INTERMEDIATE DOSE; C1, D8, TOTAL
     Route: 058
     Dates: start: 20230906, end: 20230906
  4. EPCORITAMAB [Suspect]
     Active Substance: EPCORITAMAB
     Dosage: 24 MG FULLDOSE; C1, D15 + 22, TOTAL
     Route: 058
     Dates: start: 20230913, end: 20230913
  5. RITUXIMAB [Suspect]
     Active Substance: RITUXIMAB
     Indication: Follicular lymphoma
     Dosage: 594.79 MG, EVERY 1 WEEKS
     Route: 042
     Dates: start: 20230830
  6. arboplatin;Etoposide;Ifosfamide;Rituximab [Concomitant]
     Indication: Follicular lymphoma
     Dates: start: 20230424, end: 20230627
  7. DIPYRONE [Concomitant]
     Active Substance: DIPYRONE
     Indication: Intervertebral disc protrusion
     Dosage: 8 GRAM DAILY; 2 G, EVERY 6 HOURS
     Dates: start: 202212
  8. BACLOFEN [Concomitant]
     Active Substance: BACLOFEN
     Indication: Intervertebral disc protrusion
     Dosage: 10 MILLIGRAM DAILY; 5 MG, EVERY 12 HOURS
     Dates: start: 20230626

REACTIONS (6)
  - Staphylococcal infection [Recovered/Resolved]
  - Pyrexia [Recovered/Resolved]
  - Fatigue [Recovered/Resolved]
  - Myalgia [Recovered/Resolved]
  - Headache [Recovered/Resolved]
  - Haematological infection [Recovered/Resolved]

NARRATIVE: CASE EVENT DATE: 20230901
